FAERS Safety Report 10225159 (Version 1)
Quarter: 2014Q2

REPORT INFORMATION
  Report Type: Spontaneous
  Country: US (occurrence: US)
  Receive Date: 20140609
  Receipt Date: 20140609
  Transmission Date: 20141212
  Serious: No
  Sender: FDA-Public Use
  Company Number: US-TEVA-481210USA

PATIENT
  Age: 59 Year
  Sex: Female

DRUGS (2)
  1. COPAXONE 40MG [Suspect]
     Indication: MULTIPLE SCLEROSIS
     Dosage: 17.1429 MILLIGRAM DAILY;
     Dates: start: 20140324
  2. COPAXONE 40MG [Suspect]
     Dates: end: 20140323

REACTIONS (3)
  - Bladder spasm [Not Recovered/Not Resolved]
  - Urinary tract infection [Unknown]
  - Muscle spasms [Not Recovered/Not Resolved]
